FAERS Safety Report 8102497-2 (Version None)
Quarter: 2011Q4

REPORT INFORMATION
  Report Type: 
  Country: None (occurrence: None)
  Receive Date: 20111222
  Receipt Date: 20110902
  Transmission Date: 20120403
  Serious: Yes (Hospitalization)
  Sender: FDA-Public Use
  Company Number: UTC-009940

PATIENT
  Age: 56 Year
  Sex: Female
  Weight: 127.2 kg

DRUGS (3)
  1. TYVASO [Suspect]
     Indication: COR PULMONALE CHRONIC
     Dosage: 96 MCG (24 MCG, 4 IN 1 D), INHALATION
     Route: 055
     Dates: start: 20100504
  2. REVATIO [Concomitant]
  3. TRACLEER [Concomitant]

REACTIONS (1)
  - CARDIAC FAILURE [None]
